FAERS Safety Report 24599249 (Version 1)
Quarter: 2024Q4

REPORT INFORMATION
  Report Type: Spontaneous
  Country: US (occurrence: US)
  Receive Date: 20241110
  Receipt Date: 20241110
  Transmission Date: 20250115
  Serious: No
  Sender: SANOFI AVENTIS
  Company Number: US-SA-2024SA314568

PATIENT
  Age: 53 Year
  Sex: Female

DRUGS (3)
  1. DUPIXENT [Suspect]
     Active Substance: DUPILUMAB
     Indication: Eczema
     Dosage: 600 MG, 1X
     Route: 058
     Dates: start: 202409, end: 202409
  2. DUPIXENT [Suspect]
     Active Substance: DUPILUMAB
     Dosage: 600 MG, EVERY 17-19 DAYS
     Route: 058
     Dates: start: 2024
  3. CYCLOSPORINE [Concomitant]
     Active Substance: CYCLOSPORINE
     Dosage: UNK

REACTIONS (2)
  - Inappropriate schedule of product administration [Unknown]
  - Extra dose administered [Unknown]

NARRATIVE: CASE EVENT DATE: 20240101
